FAERS Safety Report 5084745-9 (Version None)
Quarter: 2006Q3

REPORT INFORMATION
  Report Type: 
  Country: None (occurrence: None)
  Receive Date: 20060815
  Receipt Date: 20060803
  Transmission Date: 20061208
  Serious: Yes (Other)
  Sender: FDA-Public Use
  Company Number: FR200608000680

PATIENT
  Age: 50 Year
  Sex: Male

DRUGS (3)
  1. GEMZAR [Suspect]
     Indication: BLADDER CANCER
     Dosage: 1000 MG/M2, OTHER, INTRAVENOUS
     Route: 042
     Dates: start: 20060601
  2. CISPLATIN [Concomitant]
  3. CARBOPLATIN [Concomitant]

REACTIONS (1)
  - THROMBOCYTHAEMIA [None]
